FAERS Safety Report 11754772 (Version 1)
Quarter: 2015Q4

REPORT INFORMATION
  Report Type: Report from Study
  Country: US (occurrence: US)
  Receive Date: 20151119
  Receipt Date: 20151119
  Transmission Date: 20160304
  Serious: Yes (Hospitalization)
  Sender: FDA-Public Use
  Company Number: US-ABBVIE-15K-163-1501111-00

PATIENT
  Sex: Female
  Weight: 58.57 kg

DRUGS (7)
  1. HUMIRA [Suspect]
     Active Substance: ADALIMUMAB
     Indication: CROHN^S DISEASE
     Route: 058
     Dates: start: 2015
  2. ROWASA [Concomitant]
     Active Substance: MESALAMINE
     Indication: CROHN^S DISEASE
  3. PEDIASURE [Concomitant]
     Active Substance: VITAMINS
     Indication: CROHN^S DISEASE
  4. FERROUS SULFATE [Concomitant]
     Active Substance: FERROUS SULFATE\FERROUS SULFATE, DRIED
     Indication: IRON DEFICIENCY ANAEMIA
  5. PROTONIX [Concomitant]
     Active Substance: PANTOPRAZOLE SODIUM
     Indication: CROHN^S DISEASE
  6. ALBUTEROL. [Concomitant]
     Active Substance: ALBUTEROL
     Indication: WHEEZING
  7. ALBUTEROL. [Concomitant]
     Active Substance: ALBUTEROL
     Indication: COUGH

REACTIONS (3)
  - Drug ineffective [Not Recovered/Not Resolved]
  - Rectal haemorrhage [Unknown]
  - Gastrointestinal inflammation [Unknown]

NARRATIVE: CASE EVENT DATE: 2015
